FAERS Safety Report 6418693-6 (Version None)
Quarter: 2009Q4

REPORT INFORMATION
  Report Type: 
  Country: None (occurrence: None)
  Receive Date: 20091028
  Receipt Date: 20091027
  Transmission Date: 20100525
  Serious: Yes (Life-Threatening, Hospitalization)
  Sender: FDA-Public Use
  Company Number: US-SANOFI-SYNTHELABO-F01200900971

PATIENT
  Sex: Male
  Weight: 91.6 kg

DRUGS (28)
  1. XANAX [Concomitant]
  2. VICODIN [Concomitant]
     Dosage: 5/500 MG 1-2 TABLETS EVERY 6 HOURS AS NEEDED FOR PAIN
  3. AMBIEN [Concomitant]
     Dosage: 5 MG
  4. DEXAMETHASONE [Concomitant]
     Dosage: 20 MG
     Route: 042
     Dates: end: 20090602
  5. BENADRYL [Concomitant]
     Dosage: 20 MG
     Route: 042
     Dates: end: 20090602
  6. KYTRIL [Concomitant]
     Dosage: 1 MG
     Route: 042
     Dates: end: 20090602
  7. PEPCID [Concomitant]
     Dosage: 20 MG
     Route: 042
     Dates: end: 20090602
  8. VITAMIN D [Concomitant]
     Dosage: 1000
  9. GARLIC AND PARSLEY [Concomitant]
     Dosage: 500/100 MG ONCE DAILY
  10. GINKO BILOBA [Concomitant]
     Dosage: 120 MG
  11. COQ10 [Concomitant]
     Dosage: 100 MG
  12. NIACIN [Concomitant]
     Dosage: 400MG -100MG TWICE DAILY
  13. SAW PALMETTO FRUIT [Concomitant]
     Dosage: 2-3 TABLETS DAILY
  14. VITAMIN C WITH ROSE HIPS [Concomitant]
     Dosage: 1000 MG DAILY
  15. LOVAZA [Concomitant]
     Dosage: 1 GRAM CAPSULE 4 TIMES DAILY
  16. STOOL SOFTENER [Concomitant]
     Dosage: 2 TABLETS IN THE EVENING
  17. METAMUCIL PACKET [Concomitant]
     Dosage: 2 TSP EVERY EVENING
  18. PEPCID [Concomitant]
     Dosage: 2 TABS A BEDTIME
  19. CARDURA [Concomitant]
     Dosage: 2 MG
  20. VERAPAMIL EXTENDED-RELEASE [Concomitant]
  21. COMPAZINE [Concomitant]
     Route: 042
     Dates: start: 20090928, end: 20091002
  22. ZOFRAN [Concomitant]
     Route: 042
     Dates: start: 20090928, end: 20091002
  23. SENNA [Concomitant]
     Route: 048
  24. NITROGLYCERIN [Concomitant]
     Indication: CHEST PAIN
     Dosage: 0.4 MG
  25. CISPLATIN [Suspect]
     Dosage: OVER 12H X8 BAGS
     Route: 041
     Dates: start: 20090928, end: 20091002
  26. EPIRUBICIN [Suspect]
     Route: 040
     Dates: start: 20090602, end: 20090602
  27. 5-FLUOROURACIL [Suspect]
     Dosage: CYCLES 1-3: CONTINUOUS INFUSION FOR 7 DAYS. POST-OP CYCLE: OVER 12H X8 BAGS.
     Route: 041
     Dates: start: 20090928, end: 20091002
  28. OXALIPLATIN [Suspect]
     Indication: OESOPHAGEAL CARCINOMA
     Route: 041
     Dates: start: 20090602, end: 20090602

REACTIONS (6)
  - ATRIAL FIBRILLATION [None]
  - BRADYARRHYTHMIA [None]
  - CARDIAC ARREST [None]
  - RENAL FAILURE [None]
  - RENAL TUBULAR NECROSIS [None]
  - VENTRICULAR TACHYCARDIA [None]
